FAERS Safety Report 6464109-3 (Version None)
Quarter: 2009Q4

REPORT INFORMATION
  Report Type: 
  Country: None (occurrence: None)
  Receive Date: 20091201
  Receipt Date: 20091124
  Transmission Date: 20100525
  Serious: Yes (Other)
  Sender: FDA-Public Use
  Company Number: ES-B.I. PHARMACEUTICALS,INC./RIDGEFIELD-2009-ES-00202PF

PATIENT
  Age: 82 Year
  Sex: Male

DRUGS (6)
  1. SPIRIVA [Suspect]
     Indication: CHRONIC OBSTRUCTIVE PULMONARY DISEASE
     Dosage: 1 INHALATION/DAY
     Dates: start: 20090911
  2. SINTROM [Concomitant]
     Indication: CARDIAC PACEMAKER INSERTION
  3. VALSARTAN [Concomitant]
  4. TORASEMIDE [Concomitant]
  5. METFORMIN HCL [Concomitant]
  6. SYMBICORT [Concomitant]

REACTIONS (3)
  - BRONCHOSPASM [None]
  - FACE OEDEMA [None]
  - LOCALISED OEDEMA [None]
